FAERS Safety Report 25331839 (Version 2)
Quarter: 2025Q2

REPORT INFORMATION
  Report Type: Other
  Country: US (occurrence: US)
  Receive Date: 20250519
  Receipt Date: 20250630
  Transmission Date: 20250717
  Serious: No
  Sender: TRAVERE THERAPEUTICS
  Company Number: US-TRAVERE-2025TVT00710

PATIENT
  Age: 54 Year
  Sex: Male

DRUGS (1)
  1. FILSPARI [Suspect]
     Active Substance: SPARSENTAN
     Indication: IgA nephropathy
     Route: 048

REACTIONS (4)
  - Liver function test abnormal [Unknown]
  - Glomerular filtration rate abnormal [Unknown]
  - Energy increased [Unknown]
  - Wrong technique in product usage process [Unknown]
